FAERS Safety Report 5406029-9 (Version None)
Quarter: 2007Q3

REPORT INFORMATION
  Report Type: 
  Country: None (occurrence: None)
  Receive Date: 20070806
  Receipt Date: 20070731
  Transmission Date: 20080115
  Serious: Yes (Hospitalization)
  Sender: FDA-Public Use
  Company Number: A0667335A

PATIENT
  Age: 68 Year
  Sex: Male

DRUGS (17)
  1. AVODART [Suspect]
     Indication: BENIGN PROSTATIC HYPERPLASIA
     Dosage: .5MG PER DAY
     Route: 048
  2. FLOMAX [Concomitant]
  3. CADUET [Concomitant]
  4. THEOPHYLLINE [Concomitant]
  5. FUROSEMIDE [Concomitant]
  6. TRICOR [Concomitant]
  7. VYTORIN [Concomitant]
  8. WARFARIN SODIUM [Concomitant]
  9. SERTRALINE [Concomitant]
  10. LISINOPRIL [Concomitant]
  11. GLIPIZIDE [Concomitant]
  12. METOLAZONE [Concomitant]
  13. LANTUS [Concomitant]
  14. NITROGLYCERIN [Concomitant]
  15. COMBIVENT [Concomitant]
  16. DUONEB [Concomitant]
  17. LOVASTATIN [Concomitant]

REACTIONS (4)
  - BLOOD POTASSIUM DECREASED [None]
  - CARDIAC FAILURE CONGESTIVE [None]
  - DRUG INEFFECTIVE [None]
  - FALL [None]
